FAERS Safety Report 20301638 (Version 3)
Quarter: 2022Q1

REPORT INFORMATION
  Report Type: Spontaneous
  Country: US (occurrence: US)
  Receive Date: 20220105
  Receipt Date: 20220217
  Transmission Date: 20220423
  Serious: Yes (Other)
  Sender: FDA-Public Use
  Company Number: US-CELGENE-USA-20211209689

PATIENT
  Sex: Female

DRUGS (1)
  1. BREYANZI [Suspect]
     Active Substance: LISOCABTAGENE MARALEUCEL
     Indication: Diffuse large B-cell lymphoma
     Dosage: CAR + T CELLS
     Route: 041
     Dates: start: 20211222, end: 20211222

REACTIONS (2)
  - Immune effector cell-associated neurotoxicity syndrome [Not Recovered/Not Resolved]
  - Central nervous system lymphoma [Unknown]

NARRATIVE: CASE EVENT DATE: 20211225
